FAERS Safety Report 8269892-2 (Version None)
Quarter: 2012Q2

REPORT INFORMATION
  Report Type: 
  Country: None (occurrence: None)
  Receive Date: 20120410
  Receipt Date: 20120404
  Transmission Date: 20120825
  Serious: No
  Sender: FDA-Public Use
  Company Number: US-PFIZER INC-2012085675

PATIENT
  Sex: Female
  Weight: 99.773 kg

DRUGS (10)
  1. LYRICA [Suspect]
     Dosage: 75 MG, 2X/DAY
  2. TRAMADOL HCL [Suspect]
     Indication: NEUROPATHY PERIPHERAL
  3. LORATADINE [Concomitant]
     Indication: ASTHMA
     Dosage: 20 MG, DAILY
  4. LORATADINE [Concomitant]
     Indication: HYPERSENSITIVITY
  5. LYRICA [Suspect]
     Indication: NEUROPATHY PERIPHERAL
     Dosage: 50 MG, 3X/DAY
     Dates: start: 20110601
  6. TRAMADOL HCL [Suspect]
     Indication: ARTHRALGIA
     Dosage: 50 MG, 2X/DAY
  7. METFORMIN [Concomitant]
     Indication: DIABETES MELLITUS
     Dosage: 1000 MG, 2X/DAY
  8. CLONIDINE HYDROCHLORIDE [Concomitant]
     Indication: HYPERTENSION
     Dosage: 0.2 MG, DAILY
  9. LISINOPRIL [Concomitant]
     Indication: HYPERTENSION
     Dosage: 20 MG DAILY IN THE MORNING
  10. TRAMADOL HCL [Suspect]
     Indication: BACK PAIN

REACTIONS (2)
  - CIRCUMSTANCE OR INFORMATION CAPABLE OF LEADING TO MEDICATION ERROR [None]
  - DRUG INEFFECTIVE [None]
